FAERS Safety Report 5400471-8 (Version None)
Quarter: 2007Q3

REPORT INFORMATION
  Report Type: 
  Country: None (occurrence: None)
  Receive Date: 20070730
  Receipt Date: 20070716
  Transmission Date: 20080115
  Serious: Yes (Other)
  Sender: FDA-Public Use
  Company Number: US-MERCK-0707USA02579

PATIENT
  Age: 50 Year
  Sex: Male

DRUGS (2)
  1. ZOLINZA [Suspect]
     Route: 048
     Dates: start: 20070601
  2. CYCLOSPORINE [Suspect]
     Route: 065

REACTIONS (2)
  - DRUG INTERACTION [None]
  - DRUG LEVEL INCREASED [None]
